FAERS Safety Report 7744654-0 (Version None)
Quarter: 2011Q3

REPORT INFORMATION
  Report Type: 
  Country: None (occurrence: None)
  Receive Date: 20110912
  Receipt Date: 20110829
  Transmission Date: 20111222
  Serious: Yes (Other)
  Sender: FDA-Public Use
  Company Number: PHHY2011AR77189

PATIENT
  Sex: Male

DRUGS (1)
  1. DIOVAN [Suspect]
     Indication: HYPERTENSION
     Dosage: 160 MG, (1 TABLET DAILY)
     Dates: start: 19960101

REACTIONS (2)
  - INTERVERTEBRAL DISC DISORDER [None]
  - OSTEOARTHRITIS [None]
